FAERS Safety Report 21906700 (Version 3)
Quarter: 2023Q2

REPORT INFORMATION
  Report Type: Spontaneous
  Country: FI (occurrence: FI)
  Receive Date: 20230125
  Receipt Date: 20230403
  Transmission Date: 20230722
  Serious: Yes (Hospitalization)
  Sender: FDA-Public Use
  Company Number: FI-Orion Corporation ORION PHARMA-MARE2023-0021

PATIENT
  Age: 79 Year
  Sex: Male

DRUGS (22)
  1. LEUPROLIDE ACETATE [Suspect]
     Active Substance: LEUPROLIDE ACETATE
     Indication: Prostate cancer
     Dosage: 22.5 MILLIGRAM, Q3MONTHS
     Route: 065
     Dates: start: 20170704
  2. CALCIUM\CHOLECALCIFEROL [Concomitant]
     Active Substance: CALCIUM\CHOLECALCIFEROL
     Indication: Prophylaxis
     Dosage: UNK
     Dates: start: 20210829
  3. CALCIUM\CHOLECALCIFEROL [Concomitant]
     Active Substance: CALCIUM\CHOLECALCIFEROL
     Indication: Prophylaxis
     Dosage: UNK
     Dates: start: 20210829
  4. ZOLPIDEM TARTRATE [Concomitant]
     Active Substance: ZOLPIDEM TARTRATE
     Indication: Insomnia
     Dosage: UNK
     Dates: start: 2016
  5. ZOLPIDEM TARTRATE [Concomitant]
     Active Substance: ZOLPIDEM TARTRATE
     Indication: Insomnia
     Dosage: UNK
     Dates: start: 2016
  6. PANADOL [Concomitant]
     Active Substance: ACETAMINOPHEN
     Indication: Haematuria
     Dosage: UNK
     Dates: start: 20220511
  7. PANADOL [Concomitant]
     Active Substance: ACETAMINOPHEN
     Indication: Haematuria
     Dosage: UNK
     Dates: start: 20220511
  8. MIRTAZAPINE [Concomitant]
     Active Substance: MIRTAZAPINE
     Indication: Insomnia
     Dosage: UNK
     Dates: start: 202009
  9. MIRTAZAPINE [Concomitant]
     Active Substance: MIRTAZAPINE
     Indication: Insomnia
     Dosage: UNK
     Dates: start: 202009
  10. METOPROLOL TARTRATE [Concomitant]
     Active Substance: METOPROLOL TARTRATE
     Indication: Hypertension
     Dosage: UNK
     Dates: start: 2019
  11. METOPROLOL TARTRATE [Concomitant]
     Active Substance: METOPROLOL TARTRATE
     Indication: Hypertension
     Dosage: UNK
     Dates: start: 2019
  12. POLYETHYLENE GLYCOL 4000 [Concomitant]
     Active Substance: POLYETHYLENE GLYCOL 4000
     Indication: Prophylaxis
     Dosage: UNK
     Dates: start: 20200403
  13. POLYETHYLENE GLYCOL 4000 [Concomitant]
     Active Substance: POLYETHYLENE GLYCOL 4000
     Indication: Prophylaxis
     Dosage: UNK
     Dates: start: 20200403
  14. ENZALUTAMIDE [Suspect]
     Active Substance: ENZALUTAMIDE
     Indication: Prostate cancer
     Dosage: UNK UNK, QD
     Route: 065
     Dates: start: 20170704
  15. HYDROCHLOROTHIAZIDE\LOSARTAN POTASSIUM [Concomitant]
     Active Substance: HYDROCHLOROTHIAZIDE\LOSARTAN POTASSIUM
     Indication: Hypertension
     Dosage: UNK
     Dates: start: 20221010
  16. HYDROCHLOROTHIAZIDE\LOSARTAN POTASSIUM [Concomitant]
     Active Substance: HYDROCHLOROTHIAZIDE\LOSARTAN POTASSIUM
     Indication: Hypertension
     Dosage: UNK
     Dates: start: 20221010
  17. FOLVITE [Concomitant]
     Active Substance: FOLIC ACID
     Indication: Prophylaxis
     Dosage: UNK
     Dates: start: 20210829
  18. FOLVITE [Concomitant]
     Active Substance: FOLIC ACID
     Indication: Prophylaxis
     Dosage: UNK
     Dates: start: 20210829
  19. Trimopan [Concomitant]
     Indication: Prophylaxis
     Dosage: UNK
     Dates: start: 201709
  20. Trimopan [Concomitant]
     Indication: Prophylaxis
     Dosage: UNK
     Dates: start: 2017
  21. WARFARIN SODIUM [Suspect]
     Active Substance: WARFARIN SODIUM
     Indication: Atrial fibrillation
     Dosage: 5 MILLIGRAM, QD
     Route: 065
     Dates: start: 20221012, end: 20221119
  22. WARFARIN SODIUM [Suspect]
     Active Substance: WARFARIN SODIUM
     Indication: Atrial fibrillation
     Dosage: 5 MILLIGRAM, QD
     Route: 065
     Dates: start: 20221128, end: 20230104

REACTIONS (3)
  - Fall [Unknown]
  - Lower limb fracture [Not Recovered/Not Resolved]
  - Anaemia [Recovered/Resolved]

NARRATIVE: CASE EVENT DATE: 20221120
